FAERS Safety Report 4578647-1 (Version None)
Quarter: 2005Q1

REPORT INFORMATION
  Report Type: 
  Country: None (occurrence: None)
  Receive Date: 20050209
  Receipt Date: 20050209
  Transmission Date: 20050727
  Serious: Yes (Other)
  Sender: FDA-Public Use
  Company Number: None

PATIENT
  Age: 27 Year
  Sex: Female
  Weight: 108.8633 kg

DRUGS (2)
  1. ZOLOFT [Suspect]
     Indication: ANXIETY
     Dosage: 1    1 DAILY
     Dates: start: 20030301, end: 20041215
  2. ZOLOFT [Suspect]
     Indication: DEPRESSION
     Dosage: 1    1 DAILY
     Dates: start: 20030301, end: 20041215

REACTIONS (15)
  - ABNORMAL BEHAVIOUR [None]
  - AGGRESSION [None]
  - AGITATION [None]
  - ANGER [None]
  - FEELING ABNORMAL [None]
  - FORMICATION [None]
  - HOMICIDAL IDEATION [None]
  - HYPERAESTHESIA [None]
  - MUSCLE TWITCHING [None]
  - PSYCHOMOTOR HYPERACTIVITY [None]
  - SCAR [None]
  - SELF MUTILATION [None]
  - SELF-INJURIOUS IDEATION [None]
  - SUICIDAL IDEATION [None]
  - THINKING ABNORMAL [None]
